FAERS Safety Report 10290555 (Version 2)
Quarter: 2014Q3

REPORT INFORMATION
  Report Type: Spontaneous
  Country: CH (occurrence: None)
  Receive Date: 20140708
  Receipt Date: 20140715
  Transmission Date: 20150326
  Serious: Yes (Hospitalization, Other)
  Sender: FDA-Public Use
  Company Number: 7303880

PATIENT
  Age: 39 Year
  Sex: Female

DRUGS (5)
  1. MAGNESIUM (MAGNESIUM) (MAGNESIUM) [Concomitant]
     Active Substance: MAGNESIUM
  2. PANTOZOL [Suspect]
     Active Substance: PANTOPRAZOLE SODIUM
     Indication: PRODUCT USED FOR UNKNOWN INDICATION
     Route: 048
     Dates: end: 20140519
  3. RIVAROXABAN [Suspect]
     Active Substance: RIVAROXABAN
     Indication: PULMONARY EMBOLISM
     Route: 048
     Dates: start: 2012, end: 20140519
  4. DULCOLAX [Concomitant]
     Active Substance: BISACODYL OR DOCUSATE SODIUM
  5. EUTHYROX 75 (LEVOTHYROXINE SODIUM) (TABLET) (LEVOTHYROXINE SODIUM) [Suspect]
     Active Substance: LEVOTHYROXINE SODIUM
     Indication: AUTOIMMUNE THYROIDITIS
     Dosage: FOR YEARS- 20-MAY-2014
     Route: 048
     Dates: end: 20140520

REACTIONS (7)
  - Eosinophilia [None]
  - Intentional overdose [None]
  - Hyperthyroidism [None]
  - Intentional product misuse [None]
  - Tachycardia [None]
  - Mixed liver injury [None]
  - Tremor [None]

NARRATIVE: CASE EVENT DATE: 2014
